FAERS Safety Report 4771901-X (Version None)
Quarter: 2005Q3

REPORT INFORMATION
  Report Type: 
  Country: None (occurrence: None)
  Receive Date: 20050916
  Receipt Date: 20050405
  Transmission Date: 20060218
  Serious: Yes (Other)
  Sender: FDA-Public Use
  Company Number: PHEH2005US03967

PATIENT
  Age: 77 Year
  Sex: Male

DRUGS (5)
  1. TRILEPTAL [Suspect]
     Indication: CONVULSION
     Dosage: 300 MG, BID
     Route: 048
     Dates: start: 20050220
  2. COUMADIN [Suspect]
     Indication: CORONARY ARTERY SURGERY
     Dosage: 3 MG, QD
     Dates: start: 19990101
  3. COUMADIN [Suspect]
     Dosage: 4 MG 4X/WK AND 5 MG 3X/WK
  4. DIGOXIN [Concomitant]
  5. VASOTEC [Concomitant]

REACTIONS (13)
  - ASTHENIA [None]
  - BALANCE DISORDER [None]
  - BLOOD POTASSIUM INCREASED [None]
  - BLOOD PRESSURE DECREASED [None]
  - BLOOD SODIUM DECREASED [None]
  - CONDITION AGGRAVATED [None]
  - DIPLOPIA [None]
  - DRUG INTERACTION [None]
  - DRUG LEVEL DECREASED [None]
  - DYSARTHRIA [None]
  - GAIT DISTURBANCE [None]
  - INTERNATIONAL NORMALISED RATIO DECREASED [None]
  - PROTHROMBIN LEVEL DECREASED [None]
